FAERS Safety Report 9793010 (Version 4)
Quarter: 2014Q1

REPORT INFORMATION
  Report Type: Spontaneous
  Country: US (occurrence: US)
  Receive Date: 20140102
  Receipt Date: 20140122
  Transmission Date: 20141002
  Serious: Yes (Death)
  Sender: FDA-Public Use
  Company Number: US-PFIZER INC-2013372497

PATIENT
  Age: 81 Year
  Sex: Female
  Weight: 48.98 kg

DRUGS (10)
  1. LIPITOR [Suspect]
     Indication: BLOOD CHOLESTEROL INCREASED
     Dosage: 10 MG, ONCE A DAY
     Route: 048
  2. LIPITOR [Suspect]
     Indication: DYSLIPIDAEMIA
  3. XALATAN [Suspect]
     Indication: GLAUCOMA
     Dosage: 1 GTT, AT BEDTIME
     Route: 047
  4. CORDARONE [Suspect]
     Dosage: 200 MG, ONCE A DAY
     Route: 048
  5. LEVOTHYROXINE [Concomitant]
     Dosage: UNK
  6. OMEPRAZOLE [Concomitant]
     Dosage: UNK
  7. FUROSEMIDE [Concomitant]
     Dosage: UNK
  8. ARICEPT [Concomitant]
     Dosage: UNK
  9. COREG [Concomitant]
     Dosage: UNK
  10. LANSOPRAZOLE [Concomitant]
     Dosage: UNK

REACTIONS (4)
  - Cardiac failure congestive [Fatal]
  - Cardio-respiratory arrest [Fatal]
  - Hypertension [Fatal]
  - Death [Fatal]
